FAERS Safety Report 24778070 (Version 1)
Quarter: 2024Q4

REPORT INFORMATION
  Report Type: Spontaneous
  Country: CN (occurrence: CN)
  Receive Date: 20241226
  Receipt Date: 20241226
  Transmission Date: 20250115
  Serious: Yes (Other)
  Sender: XELLIA PHARMACEUTICALS
  Company Number: CN-Axellia-005440

PATIENT
  Age: 47 Year
  Sex: Male

DRUGS (4)
  1. POLYMYXIN B [Suspect]
     Active Substance: POLYMYXIN B
     Indication: Respiratory failure
  2. AVIBACTAM SODIUM\CEFTAZIDIME [Suspect]
     Active Substance: AVIBACTAM SODIUM\CEFTAZIDIME
     Indication: Respiratory failure
  3. TIGECYCLINE [Concomitant]
     Active Substance: TIGECYCLINE
  4. CEFOPERAZONE\SULBACTAM [Concomitant]
     Active Substance: CEFOPERAZONE\SULBACTAM

REACTIONS (2)
  - Drug resistance [Unknown]
  - Pneumonia [Recovered/Resolved]
